FAERS Safety Report 9495809 (Version 1)
Quarter: 2013Q3

REPORT INFORMATION
  Report Type: Spontaneous
  Country: FR (occurrence: FR)
  Receive Date: 20130903
  Receipt Date: 20130903
  Transmission Date: 20140515
  Serious: Yes (Hospitalization)
  Sender: FDA-Public Use
  Company Number: FR-009507513-1308FRA010680

PATIENT
  Age: 61 Year
  Sex: Female

DRUGS (3)
  1. TEMODAL [Suspect]
     Indication: GLIOBLASTOMA
     Dosage: 135 MG, QD
     Route: 048
     Dates: start: 20130524, end: 20130614
  2. CORTANCYL [Suspect]
  3. NOVOMIX [Concomitant]

REACTIONS (2)
  - Aplasia [Not Recovered/Not Resolved]
  - Pyrexia [Not Recovered/Not Resolved]
